FAERS Safety Report 5338972-3 (Version None)
Quarter: 2007Q2

REPORT INFORMATION
  Report Type: 
  Country: None (occurrence: None)
  Receive Date: 20070404
  Receipt Date: 20060919
  Transmission Date: 20071010
  Serious: Yes (Other)
  Sender: FDA-Public Use
  Company Number: HQWYE938120SEP06

PATIENT
  Age: 70 Year
  Sex: Female
  Weight: 72.64 kg

DRUGS (1)
  1. ALAVERT [Suspect]
     Indication: SINUS CONGESTION
     Dosage: 1 TABLET DAILY AS NEEDED, ORAL
     Route: 048
     Dates: start: 20050101

REACTIONS (3)
  - INSOMNIA [None]
  - THERAPEUTIC RESPONSE UNEXPECTED [None]
  - UNEVALUABLE EVENT [None]
